FAERS Safety Report 8022965-1 (Version None)
Quarter: 2012Q1

REPORT INFORMATION
  Report Type: 
  Country: None (occurrence: None)
  Receive Date: 20120104
  Receipt Date: 20111228
  Transmission Date: 20120608
  Serious: Yes (Death, Other)
  Sender: FDA-Public Use
  Company Number: US-TEVA-296743USA

PATIENT
  Sex: Male

DRUGS (13)
  1. LISINOPRIL [Concomitant]
     Dosage: 40 MILLIGRAM;
     Route: 048
  2. TYLOX [Concomitant]
     Dosage: 5/325 Q 6 H PRN
  3. MULTI-VITAMIN [Concomitant]
  4. SS INSULIN [Concomitant]
  5. SENNA ALEXANDRINA [Concomitant]
     Dosage: 2 TABS PRN
  6. DULOXETINE HYDROCHLORIDE [Concomitant]
     Dosage: 90 MILLIGRAM;
     Route: 048
  7. DOCUSATE SODIUM [Concomitant]
     Dosage: 100 MILLIGRAM;
     Route: 048
  8. CLOZAPINE [Suspect]
     Route: 048
  9. FERROUS SULFATE TAB [Concomitant]
     Dosage: 975 MILLIGRAM;
     Route: 048
  10. FELODIPINE [Concomitant]
     Dosage: 10 MILLIGRAM;
     Route: 048
  11. TOLTERODINE TARTRATE [Concomitant]
     Dosage: 15 UNKNOWN;
  12. CARVEDILOL [Concomitant]
     Dosage: 50 MILLIGRAM;
     Route: 048
  13. GABAPENTIN [Concomitant]
     Dosage: 1800 MILLIGRAM;
     Route: 048

REACTIONS (1)
  - CARDIAC ARREST [None]
